FAERS Safety Report 8361982-9 (Version None)
Quarter: 2012Q2

REPORT INFORMATION
  Report Type: 
  Country: None (occurrence: None)
  Receive Date: 20120515
  Receipt Date: 20100820
  Transmission Date: 20120825
  Serious: No
  Sender: FDA-Public Use
  Company Number: US-TEVA-2010004482

PATIENT
  Sex: Female

DRUGS (5)
  1. NUVIGIL [Suspect]
     Indication: SLEEP APNOEA SYNDROME
     Route: 048
     Dates: start: 20100817
  2. CLONAZEPAM [Concomitant]
     Indication: FIBROMYALGIA
     Dates: start: 20100201
  3. HYDROCODONE BITARTRATE [Concomitant]
     Indication: FIBROMYALGIA
     Dates: start: 20100101
  4. TRAZODONE HCL [Concomitant]
     Indication: FIBROMYALGIA
     Dates: start: 20090101
  5. AMBIEN CR [Concomitant]
     Indication: FIBROMYALGIA
     Dates: start: 20080101

REACTIONS (2)
  - HEADACHE [None]
  - NAUSEA [None]
